FAERS Safety Report 15171164 (Version 2)
Quarter: 2018Q3

REPORT INFORMATION
  Report Type: Spontaneous
  Country: BR (occurrence: BR)
  Receive Date: 20180720
  Receipt Date: 20180801
  Transmission Date: 20181010
  Serious: Yes (Death)
  Sender: FDA-Public Use
  Company Number: BR-PFIZER INC-2018291380

PATIENT
  Age: 86 Year
  Sex: Female

DRUGS (11)
  1. PANTOZOL [Concomitant]
     Active Substance: PANTOPRAZOLE SODIUM
     Dosage: 40 MG, 1X/DAY
     Route: 042
  2. MERONEM [Suspect]
     Active Substance: MEROPENEM
     Indication: PNEUMONIA ASPIRATION
     Dosage: 1 G, EVERY 8 HOURS
     Route: 042
  3. DIMORF [Concomitant]
     Active Substance: MORPHINE SULFATE
     Dosage: 1 MG, EVERY 12 HOURS
     Route: 042
  4. TAZOCIN [Suspect]
     Active Substance: PIPERACILLIN SODIUM\TAZOBACTAM SODIUM
     Indication: PNEUMONIA ASPIRATION
     Dosage: 4.5 G, 4X/DAY
     Route: 042
     Dates: end: 20180310
  5. MERONEM [Suspect]
     Active Substance: MEROPENEM
     Indication: URINARY TRACT INFECTION
  6. ZOLTEC [Suspect]
     Active Substance: FLUCONAZOLE
     Indication: URINARY TRACT INFECTION
  7. FLEBOCORTID [Concomitant]
     Active Substance: HYDROCORTISONE SODIUM SUCCINATE
     Dosage: 50 MG EVERY 8 HOURS
     Route: 042
  8. RIVOTRIL [Concomitant]
     Active Substance: CLONAZEPAM
     Dosage: 8 DROPS AT NIGHT, VIA NASOENTERAL PROBE
  9. SEROQUEL [Concomitant]
     Active Substance: QUETIAPINE FUMARATE
     Dosage: 25 MG AT NIGHT VIA NASOENTERAL PROBE
  10. ZOLTEC [Suspect]
     Active Substance: FLUCONAZOLE
     Indication: PNEUMONIA ASPIRATION
     Dosage: 200 MG, 1X/DAY
     Route: 042
  11. TAZOCIN [Suspect]
     Active Substance: PIPERACILLIN SODIUM\TAZOBACTAM SODIUM
     Indication: URINARY TRACT INFECTION

REACTIONS (2)
  - Pneumonia aspiration [Fatal]
  - Condition aggravated [Fatal]

NARRATIVE: CASE EVENT DATE: 20180315
